FAERS Safety Report 7755454-X (Version None)
Quarter: 2011Q3

REPORT INFORMATION
  Report Type: 
  Country: None (occurrence: None)
  Receive Date: 20110916
  Receipt Date: 20110906
  Transmission Date: 20111222
  Serious: Yes (Hospitalization)
  Sender: FDA-Public Use
  Company Number: US-JNJFOC-20110708340

PATIENT
  Sex: Male
  Weight: 113.4 kg

DRUGS (6)
  1. LIPITOR [Concomitant]
  2. STELARA [Suspect]
     Indication: PSORIASIS
     Route: 058
     Dates: start: 20100313, end: 20110101
  3. POTASSIUM [Concomitant]
     Dates: start: 20110101
  4. RAPAFLO [Concomitant]
     Dates: start: 20110601
  5. FINASTERIDE [Concomitant]
     Dates: start: 20110301
  6. DIOVAN [Concomitant]

REACTIONS (1)
  - BLADDER CANCER [None]
